FAERS Safety Report 23076025 (Version 1)
Quarter: 2023Q4

REPORT INFORMATION
  Report Type: Spontaneous
  Country: US (occurrence: None)
  Receive Date: 20231016
  Receipt Date: 20231016
  Transmission Date: 20240110
  Serious: No
  Sender: FDA-Public Use
  Company Number: None

PATIENT
  Age: 48 Year
  Sex: Male

DRUGS (6)
  1. AMBRISENTAN [Suspect]
     Active Substance: AMBRISENTAN
  2. DIGOXIN [Concomitant]
  3. SILDENAFIL [Concomitant]
     Active Substance: SILDENAFIL
  4. FUROSEMIDE [Concomitant]
     Active Substance: FUROSEMIDE
  5. TAMSULOSIN [Concomitant]
  6. GABAPENTIN [Concomitant]

REACTIONS (1)
  - Oedema [None]
